FAERS Safety Report 4466062-0 (Version None)
Quarter: 2004Q3

REPORT INFORMATION
  Report Type: 
  Country: None (occurrence: None)
  Receive Date: 20040930
  Receipt Date: 20031128
  Transmission Date: 20050211
  Serious: Yes (Hospitalization)
  Sender: FDA-Public Use
  Company Number: A02200303236

PATIENT
  Age: 56 Year
  Sex: Female

DRUGS (10)
  1. STILNOX - (ZOLPIDEM) - TABLET - 10 MG [Suspect]
     Dosage: 10 MG QD ORAL
     Route: 048
     Dates: start: 20030901, end: 20031009
  2. MIRTAZAPINE [Suspect]
     Dosage: 1 DF QD ORAL
     Route: 048
     Dates: start: 20030901, end: 20031009
  3. CLONAZEPAM [Suspect]
     Dosage: ORAL
     Route: 048
     Dates: start: 20030901, end: 20031009
  4. ALLOPURINOL [Suspect]
     Indication: GOUT
     Dosage: 1 DF QD ORAL
     Route: 048
     Dates: start: 20030901, end: 20031009
  5. PRAVASTATIN SODIUM [Suspect]
     Indication: HYPERCHOLESTEROLAEMIA
     Dosage: 1 DF QD ORAL
     Route: 048
     Dates: start: 20030901, end: 20031009
  6. TERCIAN - (CYAMEMAZINE) - SOLUTION - 40 MG/ML [Suspect]
     Dosage: ORAL
     Route: 048
     Dates: start: 20031002, end: 20031009
  7. ATARAX [Concomitant]
  8. HYDROCORTISONE [Concomitant]
  9. OMEPRAZOLE [Concomitant]
  10. AMARYL [Concomitant]

REACTIONS (3)
  - CHOLESTASIS [None]
  - CYTOLYTIC HEPATITIS [None]
  - HEPATITIS ACUTE [None]
